FAERS Safety Report 23598980 (Version 2)
Quarter: 2024Q1

REPORT INFORMATION
  Report Type: Spontaneous
  Country: GR (occurrence: GR)
  Receive Date: 20240306
  Receipt Date: 20240316
  Transmission Date: 20240410
  Serious: Yes (Life-Threatening, Hospitalization, Other)
  Sender: FDA-Public Use
  Company Number: GR-CELLTRION INC.-2024GR005025

PATIENT

DRUGS (5)
  1. RITUXIMAB [Suspect]
     Active Substance: RITUXIMAB
     Indication: Follicular lymphoma
     Dosage: UNK
     Dates: start: 202107, end: 202205
  2. RITUXIMAB [Suspect]
     Active Substance: RITUXIMAB
     Dosage: 735 MG, EVERY 4 WEEKS, (CUMULATIVE DOSE TO FIRST REACTION: 1470 MG)
     Route: 042
     Dates: start: 20231206
  3. LENALIDOMIDE [Suspect]
     Active Substance: LENALIDOMIDE
     Indication: Follicular lymphoma
     Dosage: DAILY DOSE(S): 10 MG CYCLE 1-12: DAY 1 TO 21, EVERY 1 DAYS
     Route: 048
     Dates: start: 20231206
  4. ENOXAPARIN SODIUM [Concomitant]
     Active Substance: ENOXAPARIN SODIUM
     Indication: Thrombosis prophylaxis
     Dosage: 4 IU, TOTAL
     Dates: start: 20231206
  5. SULFAMETHOXAZOLE\TRIMETHOPRIM [Concomitant]
     Active Substance: SULFAMETHOXAZOLE\TRIMETHOPRIM
     Indication: Antifungal prophylaxis
     Dosage: 960 MG, 0.33/WEEK, (DOSE(S): 960 MG, 3/WEEKS)
     Dates: start: 2018

REACTIONS (5)
  - Leukopenia [Not Recovered/Not Resolved]
  - Blood creatinine increased [Not Recovered/Not Resolved]
  - Thrombocytopenia [Not Recovered/Not Resolved]
  - Anaemia [Not Recovered/Not Resolved]
  - Intentional product use issue [Unknown]

NARRATIVE: CASE EVENT DATE: 20240117
